FAERS Safety Report 13639213 (Version 1)
Quarter: 2017Q2

REPORT INFORMATION
  Report Type: Spontaneous
  Country: US (occurrence: US)
  Receive Date: 20170609
  Receipt Date: 20170609
  Transmission Date: 20170830
  Serious: No
  Sender: FDA-Public Use
  Company Number: US-ROCHE-790502

PATIENT
  Sex: Female
  Weight: 47.6 kg

DRUGS (1)
  1. KLONOPIN [Suspect]
     Active Substance: CLONAZEPAM
     Indication: PRODUCT USED FOR UNKNOWN INDICATION
     Dosage: DATE OF USE 2 YEARS
     Route: 048

REACTIONS (3)
  - Adverse drug reaction [Unknown]
  - Product colour issue [Unknown]
  - Product quality issue [Unknown]
